FAERS Safety Report 8121423-3 (Version None)
Quarter: 2012Q1

REPORT INFORMATION
  Report Type: 
  Country: None (occurrence: None)
  Receive Date: 20120206
  Receipt Date: 20120127
  Transmission Date: 20120608
  Serious: Yes (Other)
  Sender: FDA-Public Use
  Company Number: 1000027460

PATIENT
  Age: 63 Year
  Sex: Female

DRUGS (4)
  1. ZOLOFT [Concomitant]
  2. SEROQUEL [Concomitant]
  3. VIIBRYD [Suspect]
     Indication: DEPRESSION
     Dosage: 10 MG (10 MG, 1 IN 1 D), ORAL
     Route: 048
     Dates: start: 20110901, end: 20110901
  4. KLONOPIN [Concomitant]

REACTIONS (5)
  - MYALGIA [None]
  - POLLAKIURIA [None]
  - PANIC ATTACK [None]
  - VITREOUS DETACHMENT [None]
  - HEADACHE [None]
